FAERS Safety Report 5421476-7 (Version None)
Quarter: 2007Q3

REPORT INFORMATION
  Report Type: 
  Country: None (occurrence: None)
  Receive Date: 20070821
  Receipt Date: 20070809
  Transmission Date: 20080115
  Serious: Yes (Hospitalization)
  Sender: FDA-Public Use
  Company Number: FR-PFIZER INC-2007066776

PATIENT
  Sex: Male

DRUGS (4)
  1. ATARAX [Suspect]
     Dosage: DAILY DOSE:75MG
     Route: 048
     Dates: start: 20070610, end: 20070611
  2. VISIPAQUE [Suspect]
     Indication: ARTERIOGRAM CAROTID
     Dosage: DAILY DOSE:80ML
     Route: 013
     Dates: start: 20070611, end: 20070611
  3. IODIZED OIL [Concomitant]
     Indication: THERAPEUTIC EMBOLISATION
     Dosage: DAILY DOSE:5.4ML
     Route: 013
     Dates: start: 20070611, end: 20070611
  4. DOXORUBICIN HYDROCHLORIDE [Concomitant]
     Indication: THERAPEUTIC EMBOLISATION
     Dosage: DAILY DOSE:45MG
     Route: 013
     Dates: start: 20070611, end: 20070611

REACTIONS (4)
  - BLOOD PRESSURE DECREASED [None]
  - BRADYCARDIA [None]
  - FACE OEDEMA [None]
  - LARYNGEAL OEDEMA [None]
